FAERS Safety Report 10565759 (Version 3)
Quarter: 2015Q4

REPORT INFORMATION
  Report Type: Spontaneous
  Country: US (occurrence: US)
  Receive Date: 20141105
  Receipt Date: 20151221
  Transmission Date: 20160304
  Serious: Yes (Hospitalization)
  Sender: FDA-Public Use
  Company Number: US-BAYER-2014-163319

PATIENT
  Age: 31 Year
  Sex: Female
  Weight: 68.27 kg

DRUGS (11)
  1. LIPITOR [Concomitant]
     Active Substance: ATORVASTATIN CALCIUM
     Indication: BLOOD CHOLESTEROL ABNORMAL
     Dosage: UNK
     Dates: start: 201212, end: 201308
  2. MECLIZINE [Concomitant]
     Active Substance: MECLIZINE\MECLIZINE HYDROCHLORIDE
     Dosage: 25 MG, UNK
  3. PROMETHAZINE [Concomitant]
     Active Substance: PROMETHAZINE\PROMETHAZINE HYDROCHLORIDE
  4. ATIVAN [Concomitant]
     Active Substance: LORAZEPAM
  5. YAZ [Suspect]
     Active Substance: DROSPIRENONE\ETHINYL ESTRADIOL
     Indication: CONTRACEPTION
     Dosage: UNK
     Dates: start: 200912, end: 201206
  6. METHYLPREDNISOLONE. [Concomitant]
     Active Substance: METHYLPREDNISOLONE
     Dosage: 4 MG, UNK
  7. ANTIVERT [Concomitant]
     Active Substance: MECLIZINE HYDROCHLORIDE
     Indication: VERTIGO
  8. PREDNISONE. [Concomitant]
     Active Substance: PREDNISONE
  9. MEDROL [Concomitant]
     Active Substance: METHYLPREDNISOLONE
     Indication: VERTIGO
  10. LORAZEPAM. [Concomitant]
     Active Substance: LORAZEPAM
  11. ROSUVASTATIN [Concomitant]
     Active Substance: ROSUVASTATIN

REACTIONS (13)
  - Eye disorder [None]
  - Emotional distress [None]
  - Cerebrovascular accident [None]
  - Fatigue [None]
  - Anxiety [Not Recovered/Not Resolved]
  - Nerve injury [None]
  - Coordination abnormal [None]
  - Anhedonia [None]
  - Fear [Not Recovered/Not Resolved]
  - Injury [None]
  - General physical health deterioration [None]
  - Pain [None]
  - Dizziness [Not Recovered/Not Resolved]

NARRATIVE: CASE EVENT DATE: 20120619
